FAERS Safety Report 5674255-X (Version None)
Quarter: 2008Q1

REPORT INFORMATION
  Report Type: 
  Country: None (occurrence: None)
  Receive Date: 20080320
  Receipt Date: 20080306
  Transmission Date: 20080703
  Serious: Yes (Hospitalization)
  Sender: FDA-Public Use
  Company Number: US-AMGEN-US242520

PATIENT
  Sex: Female

DRUGS (13)
  1. PANITUMUMAB [Suspect]
     Indication: COLORECTAL CANCER
     Route: 042
     Dates: start: 20070115, end: 20071015
  2. IRINOTECAN HCL [Suspect]
     Indication: COLORECTAL CANCER
     Route: 065
  3. MEGACE [Concomitant]
     Route: 065
  4. GABAPENTIN [Concomitant]
     Route: 065
  5. VITAMIN CAP [Concomitant]
     Route: 065
  6. TYLENOL (CAPLET) [Concomitant]
     Route: 065
  7. NEXIUM [Concomitant]
     Route: 065
  8. DULCOLAX [Concomitant]
     Route: 065
  9. IMODIUM [Concomitant]
     Route: 065
  10. XELODA [Concomitant]
     Route: 065
  11. PROCHLORPERAZINE [Concomitant]
     Route: 065
  12. DIAZEPAM [Concomitant]
     Route: 065
  13. FENTANYL [Concomitant]
     Route: 065

REACTIONS (5)
  - ASTHENIA [None]
  - DEHYDRATION [None]
  - DIARRHOEA [None]
  - ELECTROLYTE IMBALANCE [None]
  - HYPOMAGNESAEMIA [None]
